FAERS Safety Report 6811797-5 (Version None)
Quarter: 2010Q2

REPORT INFORMATION
  Report Type: 
  Country: None (occurrence: None)
  Receive Date: 20100628
  Receipt Date: 20100614
  Transmission Date: 20101027
  Serious: Yes (Other)
  Sender: FDA-Public Use
  Company Number: 2010AP001221

PATIENT
  Age: 45 Year
  Sex: Male

DRUGS (3)
  1. CITALOPRAM HYDROBROMIDE [Suspect]
     Dosage: 20 MG; QD PO
     Route: 048
     Dates: start: 20100301
  2. ALLOPURINOL [Concomitant]
  3. FLUTICASONE PROPIONATE [Concomitant]

REACTIONS (2)
  - DISCOMFORT [None]
  - PAIN [None]
